FAERS Safety Report 23727533 (Version 1)
Quarter: 2024Q2

REPORT INFORMATION
  Report Type: Report from Study
  Country: US (occurrence: US)
  Receive Date: 20240410
  Receipt Date: 20240410
  Transmission Date: 20240715
  Serious: Yes (Hospitalization, Other)
  Sender: FDA-Public Use
  Company Number: US-ARGENX-2024-ARGX-US002345

PATIENT

DRUGS (1)
  1. VYVGART [Suspect]
     Active Substance: EFGARTIGIMOD ALFA-FCAB
     Indication: Myasthenia gravis
     Dosage: 820 MG, 1/WEEK, FOR 4 WEEKS, REPEAT CYCLES EVERY 50 DAYS (FROM DOSE 1 OF PREVIOUS CYCLE)
     Route: 042
     Dates: start: 20240319

REACTIONS (2)
  - Dyspnoea [Unknown]
  - Postmenopausal haemorrhage [Unknown]

NARRATIVE: CASE EVENT DATE: 20240319
